FAERS Safety Report 8233697-9 (Version None)
Quarter: 2012Q1

REPORT INFORMATION
  Report Type: 
  Country: None (occurrence: None)
  Receive Date: 20120326
  Receipt Date: 20120321
  Transmission Date: 20120608
  Serious: Yes (Death, Hospitalization)
  Sender: FDA-Public Use
  Company Number: PHHY2010JM47825

PATIENT
  Age: 87 Year
  Sex: Male

DRUGS (1)
  1. EXELON [Suspect]
     Indication: AMNESIA
     Dosage: 1.5 MG, UNK
     Route: 048
     Dates: start: 20100101

REACTIONS (2)
  - DEATH [None]
  - CEREBROVASCULAR ACCIDENT [None]
